FAERS Safety Report 13144631 (Version 1)
Quarter: 2017Q1

REPORT INFORMATION
  Report Type: Report from Study
  Country: US (occurrence: US)
  Receive Date: 20170124
  Receipt Date: 20170124
  Transmission Date: 20170428
  Serious: Yes (Death, Other)
  Sender: FDA-Public Use
  Company Number: US-ELI_LILLY_AND_COMPANY-US201502002410

PATIENT
  Age: 79 Year
  Sex: Female

DRUGS (13)
  1. DETROL LA [Concomitant]
     Active Substance: TOLTERODINE TARTRATE
  2. ARICEPT [Concomitant]
     Active Substance: DONEPEZIL HYDROCHLORIDE
  3. ALENDRONATE [Concomitant]
     Active Substance: ALENDRONATE SODIUM
     Dosage: UNK
     Dates: start: 2005
  4. LORTAB [Concomitant]
     Active Substance: ACETAMINOPHEN\HYDROCODONE BITARTRATE
  5. PROCRIT [Concomitant]
     Active Substance: ERYTHROPOIETIN
  6. HYZAAR [Concomitant]
     Active Substance: HYDROCHLOROTHIAZIDE\LOSARTAN POTASSIUM
  7. REGLAN [Concomitant]
     Active Substance: METOCLOPRAMIDE HYDROCHLORIDE
  8. NEURONTIN [Concomitant]
     Active Substance: GABAPENTIN
  9. AMBIEN [Concomitant]
     Active Substance: ZOLPIDEM TARTRATE
  10. AVINZA [Concomitant]
     Active Substance: MORPHINE SULFATE
  11. NITROFURANTOIN. [Concomitant]
     Active Substance: NITROFURANTOIN
  12. FORTEO [Suspect]
     Active Substance: TERIPARATIDE
     Indication: OSTEOPOROSIS
     Dosage: UNK
     Dates: start: 2004
  13. AVANDIA [Concomitant]
     Active Substance: ROSIGLITAZONE MALEATE

REACTIONS (3)
  - Upper limb fracture [Unknown]
  - Osteosarcoma [Fatal]
  - Fall [Unknown]

NARRATIVE: CASE EVENT DATE: 20100804
